FAERS Safety Report 5047761-9 (Version None)
Quarter: 2006Q3

REPORT INFORMATION
  Report Type: 
  Country: None (occurrence: None)
  Receive Date: 20060710
  Receipt Date: 20060710
  Transmission Date: 20061208
  Serious: Yes (Hospitalization)
  Sender: FDA-Public Use
  Company Number: None

PATIENT
  Age: 38 Year
  Sex: Male
  Weight: 106 kg

DRUGS (9)
  1. CARBAMAZEPINE [Suspect]
     Indication: BIPOLAR DISORDER
     Dosage: 100 MG -1/2 TAB- BID PO
     Route: 048
     Dates: start: 20060412, end: 20060515
  2. SIMVASTATIN [Suspect]
     Indication: HYPERLIPIDAEMIA
     Dosage: 20 MG -1/2 TAB- QHS PO
     Route: 048
     Dates: start: 20060425, end: 20060515
  3. CARBAMAZEPINE [Concomitant]
  4. LISINOPRIL [Concomitant]
  5. METFORMIN HYDROCHLORIDE [Concomitant]
  6. OMEPRAZOLE [Concomitant]
  7. PRECISION XTRA -GLUCOSE- TEST STRIP [Concomitant]
  8. PRECISION XTRA METER [Concomitant]
  9. SIMVASTATIN [Concomitant]

REACTIONS (8)
  - BIPOLAR DISORDER [None]
  - BLOOD CHOLESTEROL ABNORMAL [None]
  - BLOOD GLUCOSE INCREASED [None]
  - DRUG HYPERSENSITIVITY [None]
  - DRUG INEFFECTIVE [None]
  - DYSPNOEA [None]
  - HEADACHE [None]
  - PYREXIA [None]
